FAERS Safety Report 8778464 (Version 3)
Quarter: 2012Q4

REPORT INFORMATION
  Report Type: 
  Country: US (occurrence: US)
  Receive Date: 20120912
  Receipt Date: 20121130
  Transmission Date: 20130627
  Serious: Yes (Hospitalization)
  Sender: FDA-Public Use
  Company Number: US-GILEAD-2012-0060950

PATIENT
  Age: 58 Year
  Sex: Male

DRUGS (2)
  1. LETAIRIS [Suspect]
     Indication: PULMONARY ARTERIAL HYPERTENSION
     Dosage: 10 mg, UNK
     Route: 048
     Dates: start: 20120618
  2. TYVASO [Concomitant]

REACTIONS (3)
  - Appendix disorder [Unknown]
  - Heart rate increased [Unknown]
  - Blood pressure increased [Unknown]
